FAERS Safety Report 7809367-5 (Version None)
Quarter: 2011Q4

REPORT INFORMATION
  Report Type: 
  Country: None (occurrence: None)
  Receive Date: 20111012
  Receipt Date: 20110930
  Transmission Date: 20120403
  Serious: Yes (Hospitalization)
  Sender: FDA-Public Use
  Company Number: JP-EISAI INC-E2090-01779-SPO-JP

PATIENT
  Sex: Male

DRUGS (3)
  1. ZONISAMIDE [Suspect]
     Dosage: TAPERED TO 400 MG DAILY
     Route: 048
  2. ZONISAMIDE [Suspect]
     Indication: EPILEPSY
     Dosage: 200 MG DAILY
     Route: 048
  3. ZONISAMIDE [Suspect]
     Dosage: 600 MG DAILY
     Route: 048

REACTIONS (1)
  - HEAT ILLNESS [None]
